FAERS Safety Report 5869283-5 (Version None)
Quarter: 2008Q3

REPORT INFORMATION
  Report Type: 
  Country: None (occurrence: None)
  Receive Date: 20080828
  Receipt Date: 20080815
  Transmission Date: 20090109
  Serious: Yes (Hospitalization)
  Sender: FDA-Public Use
  Company Number: WAES 0803USA03145

PATIENT
  Age: 71 Year
  Sex: Female
  Weight: 68.9467 kg

DRUGS (31)
  1. VORINOSTAT [Suspect]
     Indication: ACUTE MYELOID LEUKAEMIA
     Dosage: 400 MG/DAILY/PO
     Route: 048
     Dates: start: 20080313, end: 20080326
  2. VORINOSTAT [Suspect]
     Indication: MYELODYSPLASTIC SYNDROME
     Dosage: 400 MG/DAILY/PO
     Route: 048
     Dates: start: 20080313, end: 20080326
  3. VORINOSTAT [Suspect]
     Indication: ACUTE MYELOID LEUKAEMIA
     Dosage: 400 MG/DAILY/PO
     Route: 048
     Dates: start: 20080410, end: 20080423
  4. VORINOSTAT [Suspect]
     Indication: MYELODYSPLASTIC SYNDROME
     Dosage: 400 MG/DAILY/PO
     Route: 048
     Dates: start: 20080410, end: 20080423
  5. VORINOSTAT [Suspect]
     Indication: ACUTE MYELOID LEUKAEMIA
     Dosage: 400 MG/DAILY/PO
     Route: 048
     Dates: start: 20080510, end: 20080523
  6. VORINOSTAT [Suspect]
     Indication: MYELODYSPLASTIC SYNDROME
     Dosage: 400 MG/DAILY/PO
     Route: 048
     Dates: start: 20080510, end: 20080523
  7. DOXYCYCLINE [Suspect]
     Indication: ROSACEA
     Dosage: 50 MG/BID/PO
     Route: 048
     Dates: start: 20080307, end: 20080317
  8. GEMFIBROZIL [Suspect]
     Indication: HYPERLIPIDAEMIA
     Dosage: 600 MG/BID/PO
     Route: 048
     Dates: start: 20070301, end: 20080317
  9. DECITABINE [Suspect]
     Indication: ACUTE MYELOID LEUKAEMIA
     Dosage: 35 MG/DAILY/IV
     Route: 042
     Dates: start: 20080308, end: 20080312
  10. DECITABINE [Suspect]
     Indication: MYELODYSPLASTIC SYNDROME
     Dosage: 35 MG/DAILY/IV
     Route: 042
     Dates: start: 20080308, end: 20080312
  11. DECITABINE [Suspect]
     Indication: ACUTE MYELOID LEUKAEMIA
     Dosage: 35 MG/DAILY/IV
     Route: 042
     Dates: start: 20080405, end: 20080409
  12. DECITABINE [Suspect]
     Indication: MYELODYSPLASTIC SYNDROME
     Dosage: 35 MG/DAILY/IV
     Route: 042
     Dates: start: 20080405, end: 20080409
  13. DECITABINE [Suspect]
     Indication: ACUTE MYELOID LEUKAEMIA
     Dosage: 35 MG/DAILY/IV
     Route: 042
     Dates: start: 20080505, end: 20080507
  14. DECITABINE [Suspect]
     Indication: MYELODYSPLASTIC SYNDROME
     Dosage: 35 MG/DAILY/IV
     Route: 042
     Dates: start: 20080505, end: 20080507
  15. BISOPROLOL FUMARATE AND HYDROCHLOROTHIAZIDE [Suspect]
     Indication: HYPERTENSION
     Dosage: 2.6 MG/DAILY/PO
     Route: 048
     Dates: start: 20080301, end: 20080317
  16. AVELOX [Suspect]
     Indication: ANTIBIOTIC PROPHYLAXIS
     Dosage: 400 MG/DAILY/PO
     Route: 048
     Dates: start: 20080314, end: 20080317
  17. LOTEMAX [Concomitant]
  18. ACETAMINOPHEN [Concomitant]
  19. ALLOPURINOL [Concomitant]
  20. CALCIUM (UNSPECIFIED) (+) VITAMIN D [Concomitant]
  21. DIPHENHYDRAMINE HYDROCHLORIDE [Concomitant]
  22. DOCUSATE SODIUM [Concomitant]
  23. HYDROXYUREA [Concomitant]
  24. LORAZEPAM [Concomitant]
  25. LOVAZA [Concomitant]
  26. OMEPRAZOLE [Concomitant]
  27. ONDANSETRON [Concomitant]
  28. OXYCODONE HCL [Concomitant]
  29. PAROXETINE HCL [Concomitant]
  30. POTASSIUM CHLORIDE [Concomitant]
  31. SENNOSIDES [Concomitant]

REACTIONS (9)
  - ASTHENIA [None]
  - BUNDLE BRANCH BLOCK RIGHT [None]
  - DRUG DOSE OMISSION [None]
  - HYPOPHAGIA [None]
  - NAUSEA [None]
  - SYNCOPE [None]
  - SYNCOPE VASOVAGAL [None]
  - URINARY TRACT OBSTRUCTION [None]
  - VOMITING [None]
